FAERS Safety Report 18171837 (Version 1)
Quarter: 2020Q3

REPORT INFORMATION
  Report Type: Other
  Country: US (occurrence: US)
  Receive Date: 20200819
  Receipt Date: 20200819
  Transmission Date: 20201103
  Serious: Yes (Death, Life-Threatening, Other)
  Sender: FDA-Public Use
  Company Number: US-ROCHE-2604724

PATIENT
  Age: 70 Year
  Sex: Male
  Weight: 80.7 kg

DRUGS (6)
  1. HYDROXYCHLOROQUINE [Concomitant]
     Active Substance: HYDROXYCHLOROQUINE
  2. ACTIVASE [Suspect]
     Active Substance: ALTEPLASE
     Indication: PULMONARY EMBOLISM
     Dosage: INFUSION
     Route: 042
     Dates: start: 20200502, end: 20200504
  3. ACTIVASE [Suspect]
     Active Substance: ALTEPLASE
     Indication: PULMONARY EMBOLISM
  4. IVERMECTIN. [Concomitant]
     Active Substance: IVERMECTIN
  5. CONVALESCENT PLASMA [Concomitant]
     Active Substance: HUMAN PLASMA
  6. ACTIVASE [Suspect]
     Active Substance: ALTEPLASE
     Indication: COVID-19
     Dosage: INFUSION
     Route: 042
     Dates: start: 20200421

REACTIONS (6)
  - Anaemia [Recovered/Resolved with Sequelae]
  - Death [Fatal]
  - Off label use [Unknown]
  - Intentional product use issue [Unknown]
  - Deep vein thrombosis [Unknown]
  - Gingival bleeding [Recovered/Resolved]

NARRATIVE: CASE EVENT DATE: 20200421
